FAERS Safety Report 12297897 (Version 2)
Quarter: 2016Q3

REPORT INFORMATION
  Report Type: Spontaneous
  Country: US (occurrence: US)
  Receive Date: 20160422
  Receipt Date: 20160826
  Transmission Date: 20161109
  Serious: Yes (Hospitalization, Other)
  Sender: FDA-Public Use
  Company Number: US-PFIZER INC-2016220099

PATIENT
  Age: 83 Year
  Sex: Male

DRUGS (1)
  1. TIKOSYN [Suspect]
     Active Substance: DOFETILIDE
     Indication: ATRIAL FIBRILLATION
     Dosage: 250 UG, 2X/DAY (Q 12HRS)
     Route: 048
     Dates: start: 201201, end: 201603

REACTIONS (3)
  - Disease progression [Unknown]
  - Dysphagia [Unknown]
  - Head and neck cancer [Unknown]

NARRATIVE: CASE EVENT DATE: 2015
